FAERS Safety Report 18847586 (Version 2)
Quarter: 2021Q2

REPORT INFORMATION
  Report Type: Report from Study
  Country: US (occurrence: US)
  Receive Date: 20210204
  Receipt Date: 20210412
  Transmission Date: 20210717
  Serious: Yes (Hospitalization)
  Sender: FDA-Public Use
  Company Number: US-EMD SERONO-9216598

PATIENT
  Age: 51 Year
  Sex: Female

DRUGS (3)
  1. MAVENCLAD [Suspect]
     Active Substance: CLADRIBINE
     Indication: MULTIPLE SCLEROSIS
     Dosage: YEAR ONE MONTH ONE THERAPY
     Route: 048
     Dates: start: 20200130
  2. MAVENCLAD [Suspect]
     Active Substance: CLADRIBINE
     Dosage: YEAR ONE MONTH TWO THERAPY
     Route: 048
     Dates: start: 20200303
  3. COVID? 19 VACCINE [Concomitant]
     Indication: COVID-19 IMMUNISATION
     Dates: start: 20210309

REACTIONS (2)
  - Loss of consciousness [Recovering/Resolving]
  - COVID-19 [Not Recovered/Not Resolved]

NARRATIVE: CASE EVENT DATE: 20201228
